FAERS Safety Report 7623226-2 (Version None)
Quarter: 2011Q3

REPORT INFORMATION
  Report Type: 
  Country: None (occurrence: None)
  Receive Date: 20110720
  Receipt Date: 20110715
  Transmission Date: 20111222
  Serious: Yes (Death, Hospitalization, Other)
  Sender: FDA-Public Use
  Company Number: PHHY2011NZ12189

PATIENT
  Sex: Male

DRUGS (5)
  1. MORPHINE [Concomitant]
     Indication: PALLIATIVE CARE
  2. CLOZAPINE [Suspect]
     Indication: DEMENTIA
  3. CLONAZEPAM [Concomitant]
     Indication: PALLIATIVE CARE
  4. CLOZAPINE [Suspect]
     Indication: SCHIZOPHRENIA
     Dates: start: 20110125, end: 20110128
  5. CLOZAPINE [Suspect]
     Indication: PSYCHOTIC DISORDER

REACTIONS (3)
  - PSYCHOTIC DISORDER [None]
  - PNEUMONIA [None]
  - DEMENTIA [None]
